FAERS Safety Report 5883319-7 (Version None)
Quarter: 2008Q3

REPORT INFORMATION
  Report Type: 
  Country: None (occurrence: None)
  Receive Date: 20080911
  Receipt Date: 20080911
  Transmission Date: 20090109
  Serious: Yes (Hospitalization, Other)
  Sender: FDA-Public Use
  Company Number: None

PATIENT
  Age: 28 Year
  Sex: Female
  Weight: 138.3471 kg

DRUGS (1)
  1. IMPLANON [Suspect]
     Indication: CONTRACEPTION
     Dosage: 68 MG ID
     Route: 023
     Dates: start: 20070924, end: 20080911

REACTIONS (5)
  - CONVULSION [None]
  - FEELING COLD [None]
  - HOT FLUSH [None]
  - HYPERTENSION [None]
  - ILL-DEFINED DISORDER [None]
